FAERS Safety Report 7357772-6 (Version None)
Quarter: 2011Q1

REPORT INFORMATION
  Report Type: 
  Country: None (occurrence: None)
  Receive Date: 20110317
  Receipt Date: 20110310
  Transmission Date: 20110831
  Serious: Yes (Other)
  Sender: FDA-Public Use
  Company Number: NO-US-EMD SERONO, INC.-7026733

PATIENT
  Sex: Female

DRUGS (2)
  1. UNSPECIFIED TREATMENT FOR HIGH BLOOD PRESSURE [Concomitant]
     Indication: HYPERTENSION
  2. REBIF [Suspect]
     Indication: MULTIPLE SCLEROSIS
     Dates: start: 20090909

REACTIONS (3)
  - PAIN [None]
  - MALIGNANT MELANOMA [None]
  - BACTERIAL INFECTION [None]
